FAERS Safety Report 7922694-6 (Version None)
Quarter: 2011Q4

REPORT INFORMATION
  Report Type: 
  Country: None (occurrence: None)
  Receive Date: 20111117
  Receipt Date: 20110124
  Transmission Date: 20120403
  Serious: Yes (Hospitalization)
  Sender: FDA-Public Use
  Company Number: US-AMGEN-USASP2011002901

PATIENT
  Age: 47 Year
  Sex: Female
  Weight: 130.16 kg

DRUGS (1)
  1. ENBREL [Suspect]
     Indication: PSORIATIC ARTHROPATHY
     Dosage: 50 MG, 2 TIMES/WK
     Route: 058
     Dates: start: 20101112

REACTIONS (2)
  - RESPIRATORY DISORDER [None]
  - CARDIAC FAILURE CONGESTIVE [None]
